FAERS Safety Report 16922957 (Version 1)
Quarter: 2019Q4

REPORT INFORMATION
  Report Type: Spontaneous
  Country: CA (occurrence: CA)
  Receive Date: 20191016
  Receipt Date: 20191016
  Transmission Date: 20200122
  Serious: Yes (Life-Threatening, Hospitalization, Other)
  Sender: FDA-Public Use
  Company Number: CA-BRISTOL-MYERS SQUIBB COMPANY-BMS-2019-097517

PATIENT
  Age: 69 Year
  Sex: Male
  Weight: 94 kg

DRUGS (3)
  1. OPDIVO [Suspect]
     Active Substance: NIVOLUMAB
     Indication: RENAL CANCER STAGE IV
     Dosage: 279 MILLIGRAM, Q3WK
     Route: 042
  2. YERVOY [Suspect]
     Active Substance: IPILIMUMAB
     Indication: RENAL CANCER STAGE IV
     Dosage: 96 MILLIGRAM, Q3WK
     Route: 042
  3. PERINDOPRIL [Concomitant]
     Active Substance: PERINDOPRIL
     Indication: PRODUCT USED FOR UNKNOWN INDICATION
     Route: 065

REACTIONS (13)
  - Eyelid ptosis [Unknown]
  - Hypotension [Unknown]
  - Thyroiditis [Unknown]
  - Thyroxine decreased [Unknown]
  - Blood thyroid stimulating hormone decreased [Unknown]
  - Pulmonary embolism [Unknown]
  - Intentional product use issue [Unknown]
  - Pain in extremity [Unknown]
  - Peripheral artery thrombosis [Unknown]
  - Angiopathy [Unknown]
  - Dyspnoea [Unknown]
  - Atrial fibrillation [Unknown]
  - Peripheral ischaemia [Unknown]
